FAERS Safety Report 17009520 (Version 1)
Quarter: 2019Q4

REPORT INFORMATION
  Report Type: Spontaneous
  Country: US (occurrence: US)
  Receive Date: 20190930
  Receipt Date: 20190930
  Transmission Date: 20200122
  Serious: No
  Sender: FDA-Public Use
  Company Number: None

PATIENT
  Age: 75 Year
  Sex: Female

DRUGS (2)
  1. FORTEO [Suspect]
     Active Substance: TERIPARATIDE
     Indication: OSTEOPOROSIS
     Route: 058
     Dates: start: 20190723
  2. OMNIPOD [Concomitant]

REACTIONS (4)
  - Product use issue [None]
  - Therapy cessation [None]
  - Product dispensing error [None]
  - Extra dose administered [None]

NARRATIVE: CASE EVENT DATE: 20190930
